FAERS Safety Report 4402908-X (Version None)
Quarter: 2004Q3

REPORT INFORMATION
  Report Type: 
  Country: None (occurrence: None)
  Receive Date: 20040720
  Receipt Date: 20040705
  Transmission Date: 20050211
  Serious: No
  Sender: FDA-Public Use
  Company Number: 2004GB01638

PATIENT
  Age: 55 Year
  Sex: Female
  Weight: 72 kg

DRUGS (3)
  1. CRESTOR [Suspect]
     Indication: LIPIDS INCREASED
     Dosage: 10 MG PO
     Route: 048
     Dates: start: 20030617, end: 20040623
  2. CRESTOR [Suspect]
     Indication: MYOCARDIAL ISCHAEMIA
     Dosage: 10 MG PO
     Route: 048
     Dates: start: 20030617, end: 20040623
  3. CLARITHROMYCIN [Suspect]
     Indication: LOWER RESPIRATORY TRACT INFECTION
     Dosage: 5000 MG PO
     Route: 048
     Dates: start: 20040615, end: 20040623

REACTIONS (2)
  - DRUG INTERACTION [None]
  - MYOPATHY [None]
